FAERS Safety Report 16224749 (Version 1)
Quarter: 2019Q2

REPORT INFORMATION
  Report Type: Spontaneous
  Country: US (occurrence: US)
  Receive Date: 20190422
  Receipt Date: 20190422
  Transmission Date: 20190711
  Serious: Yes (Hospitalization)
  Sender: FDA-Public Use
  Company Number: US-JUBILANT CADISTA PHARMACEUTICALS-2019JUB00156

PATIENT
  Age: 32 Year
  Sex: Female

DRUGS (2)
  1. TIZANIDINE. [Suspect]
     Active Substance: TIZANIDINE
     Indication: DRUG WITHDRAWAL MAINTENANCE THERAPY
     Dosage: UNKNOWN INITIAL TREATMENT REGIMEN
     Route: 065
  2. TIZANIDINE. [Suspect]
     Active Substance: TIZANIDINE
     Dosage: 20-30 TABLETS
     Route: 065

REACTIONS (1)
  - Shock [Recovered/Resolved]
